FAERS Safety Report 4548412-X (Version None)
Quarter: 2004Q4

REPORT INFORMATION
  Report Type: 
  Country: None (occurrence: None)
  Receive Date: 20041227
  Receipt Date: 20041019
  Transmission Date: 20050328
  Serious: Yes (Death)
  Sender: FDA-Public Use
  Company Number: 04P-163-0276891-00

PATIENT
  Age: 64 Year
  Sex: Female

DRUGS (11)
  1. HUMIRA [Suspect]
     Indication: RHEUMATOID ARTHRITIS
     Dosage: 40 MG , 1 IN 2 W, SUBCUTANEOUS
     Route: 058
     Dates: start: 20030501
  2. METHOTREXATE [Concomitant]
  3. PREDNISONE [Concomitant]
  4. SULFASALAZINE [Concomitant]
  5. FLOXETINE HYDROCHLORIDE [Concomitant]
  6. ACETYLSALICYLIC ACID SRT [Concomitant]
  7. TRAZODONE HCL [Concomitant]
  8. CALCIUM GLUCONATE [Concomitant]
  9. ERGOCALCIFEROL [Concomitant]
  10. DEXTROPROPOXYPHENE HYDROCHLORIDE [Concomitant]
  11. VICODIN [Concomitant]

REACTIONS (1)
  - PANCREATIC CARCINOMA [None]
